FAERS Safety Report 26136956 (Version 1)
Quarter: 2025Q4

REPORT INFORMATION
  Report Type: Spontaneous
  Country: US (occurrence: None)
  Receive Date: 20251209
  Receipt Date: 20251209
  Transmission Date: 20260117
  Serious: Yes (Other)
  Sender: FDA-CTU
  Company Number: None

PATIENT
  Age: 55 Year
  Sex: Female

DRUGS (1)
  1. ADALIMUMAB-ADAZ [Suspect]
     Active Substance: ADALIMUMAB-ADAZ
     Indication: Crohn^s disease
     Dosage: OTHER FREQUENCY : EVERY 14 DAYS;
     Route: 058
     Dates: start: 20251009, end: 20251106

REACTIONS (3)
  - Generalised oedema [None]
  - Therapy interrupted [None]
  - Therapy cessation [None]

NARRATIVE: CASE EVENT DATE: 20251106
